FAERS Safety Report 26011331 (Version 1)
Quarter: 2025Q4

REPORT INFORMATION
  Report Type: Spontaneous
  Country: EU (occurrence: EU)
  Receive Date: 20251107
  Receipt Date: 20251107
  Transmission Date: 20260117
  Serious: Yes (Other)
  Sender: MERCK SHARP & DOHME LLC
  Company Number: EU-009507513-2345333

PATIENT
  Age: 72 Year
  Sex: Female

DRUGS (5)
  1. WINREVAIR [Suspect]
     Active Substance: SOTATERCEPT-CSRK
     Dosage: THE FIRST AT 0.3 MG/KG, THEN 4 INJECTIONS EVERY 3 WEEKS AT 0.7 MG/KG
     Dates: start: 2025, end: 2025
  2. WINREVAIR [Suspect]
     Active Substance: SOTATERCEPT-CSRK
     Dosage: THE FIRST AT 0.3 MG/KG, THEN 4 INJECTIONS EVERY 3 WEEKS AT 0.7 MG/KG
     Dates: start: 2025, end: 2025
  3. WINREVAIR [Suspect]
     Active Substance: SOTATERCEPT-CSRK
     Dosage: THE FIRST AT 0.3 MG/KG, THEN 4 INJECTIONS EVERY 3 WEEKS AT 0.7 MG/KG
     Dates: start: 2025, end: 2025
  4. WINREVAIR [Suspect]
     Active Substance: SOTATERCEPT-CSRK
     Dosage: THE FIRST AT 0.3 MG/KG, THEN 4 INJECTIONS EVERY 3 WEEKS AT 0.7 MG/KG
     Dates: start: 2025, end: 2025
  5. WINREVAIR [Suspect]
     Active Substance: SOTATERCEPT-CSRK
     Dosage: THE FIRST AT 0.3 MG/KG, THEN 4 INJECTIONS EVERY 3 WEEKS AT 0.7 MG/KG
     Dates: start: 20251017, end: 20251017

REACTIONS (5)
  - Cardiac failure chronic [Unknown]
  - Pleural disorder [Unknown]
  - Pericardial effusion [Unknown]
  - Hypoxia [Unknown]
  - Pleural effusion [Unknown]

NARRATIVE: CASE EVENT DATE: 20250101
